FAERS Safety Report 4665663-4 (Version None)
Quarter: 2005Q2

REPORT INFORMATION
  Report Type: 
  Country: None (occurrence: None)
  Receive Date: 20050518
  Receipt Date: 20050518
  Transmission Date: 20051028
  Serious: Yes (Hospitalization)
  Sender: FDA-Public Use
  Company Number: None

PATIENT
  Sex: Male

DRUGS (2)
  1. AVASTIN [Suspect]
     Indication: COLON CANCER
     Dosage: 500MG X1, Q  2WKS INTRAVENOUS
     Route: 042
     Dates: start: 20050223, end: 20050516
  2. ELOXATIN [Suspect]
     Dosage: 170MG  X1, Q2 WKS INTRAVENOUS
     Route: 042
     Dates: start: 20050223, end: 20050516

REACTIONS (5)
  - CHILLS [None]
  - OXYGEN SATURATION DECREASED [None]
  - PALLOR [None]
  - PYREXIA [None]
  - SKIN DISCOLOURATION [None]
